FAERS Safety Report 18695476 (Version 2)
Quarter: 2021Q1

REPORT INFORMATION
  Report Type: Spontaneous
  Country: US (occurrence: US)
  Receive Date: 20210104
  Receipt Date: 20210201
  Transmission Date: 20210419
  Serious: No
  Sender: FDA-Public Use
  Company Number: US-KARYOPHARM-2020KPT001332

PATIENT

DRUGS (2)
  1. XPOVIO [Suspect]
     Active Substance: SELINEXOR
     Indication: NEPHROBLASTOMA
     Dosage: 20 MG, WEEKLY
     Route: 048
     Dates: start: 20201023, end: 20201113
  2. XPOVIO [Suspect]
     Active Substance: SELINEXOR
     Dosage: 40 MG, WEEKLY
     Dates: start: 20201114, end: 20201229

REACTIONS (7)
  - Fatigue [Recovered/Resolved]
  - Constipation [Unknown]
  - Asthenia [Unknown]
  - Somnolence [Recovered/Resolved]
  - Decreased appetite [Unknown]
  - Off label use [Unknown]
  - Drug ineffective [Unknown]

NARRATIVE: CASE EVENT DATE: 20201023
